FAERS Safety Report 12470639 (Version 1)
Quarter: 2016Q2

REPORT INFORMATION
  Report Type: Spontaneous
  Country: US (occurrence: US)
  Receive Date: 20160616
  Receipt Date: 20160616
  Transmission Date: 20160815
  Serious: No
  Sender: FDA-Public Use
  Company Number: US-TEVA-662999ACC

PATIENT
  Sex: Female
  Weight: 84.9 kg

DRUGS (1)
  1. PARAGARD T 380A [Suspect]
     Active Substance: COPPER
     Indication: CONTRACEPTION
     Dates: start: 201409

REACTIONS (9)
  - Menorrhagia [Unknown]
  - Emotional disorder [Unknown]
  - Depression [Not Recovered/Not Resolved]
  - Weight increased [Unknown]
  - Anxiety [Not Recovered/Not Resolved]
  - Acne [Not Recovered/Not Resolved]
  - Weight loss poor [Not Recovered/Not Resolved]
  - Lethargy [Unknown]
  - Loss of libido [Unknown]
